FAERS Safety Report 24443718 (Version 2)
Quarter: 2024Q4

REPORT INFORMATION
  Report Type: Report from Study
  Country: US (occurrence: US)
  Receive Date: 20241016
  Receipt Date: 20241017
  Transmission Date: 20250115
  Serious: No
  Sender: ROCHE
  Company Number: US-ROCHE-1997552

PATIENT
  Age: 49 Year
  Sex: Female

DRUGS (7)
  1. RITUXAN [Suspect]
     Active Substance: RITUXIMAB
     Indication: Multiple sclerosis
     Dosage: ON DAY 1 AND DAY 15 EVERY 6 MONTHS, DATE OF TREATMENT: 10/MAY/2024, 07/DEC/2023, 07/JUL/2023, 18/JAN
     Route: 041
     Dates: start: 20171129
  2. TYLENOL [Concomitant]
     Active Substance: ACETAMINOPHEN
     Route: 048
  3. ZOFRAN [Concomitant]
     Active Substance: ONDANSETRON HYDROCHLORIDE
     Route: 042
  4. ZOFRAN [Concomitant]
     Active Substance: ONDANSETRON HYDROCHLORIDE
     Route: 042
  5. BENADRYL [Concomitant]
     Active Substance: DIPHENHYDRAMINE HYDROCHLORIDE
     Route: 042
  6. SOLU-MEDROL [Concomitant]
     Active Substance: METHYLPREDNISOLONE SODIUM SUCCINATE
     Route: 042
  7. PEPCID [Concomitant]
     Active Substance: FAMOTIDINE

REACTIONS (2)
  - Off label use [Unknown]
  - No adverse event [Unknown]
